FAERS Safety Report 18526984 (Version 1)
Quarter: 2020Q4

REPORT INFORMATION
  Report Type: Spontaneous
  Country: US (occurrence: US)
  Receive Date: 20201120
  Receipt Date: 20201120
  Transmission Date: 20210114
  Serious: Yes (Other)
  Sender: FDA-Public Use
  Company Number: US-MACLEODS PHARMACEUTICALS US LTD-MAC2020029173

PATIENT

DRUGS (6)
  1. PREDNISOLONE. [Suspect]
     Active Substance: PREDNISOLONE
     Indication: IRITIS
     Dosage: UNK, PREDNISOLONE ACETATE 1%
     Route: 061
  2. VALACYCLOVIR [Concomitant]
     Active Substance: VALACYCLOVIR HYDROCHLORIDE
     Indication: RETINITIS VIRAL
     Dosage: 1 GRAM, TID
     Route: 065
  3. PREDNISONE. [Suspect]
     Active Substance: PREDNISONE
     Indication: RETINITIS VIRAL
     Dosage: 60 MILLIGRAM
     Route: 048
  4. IMMUNOGLOBULIN [Concomitant]
     Indication: DERMATOMYOSITIS
     Dosage: UNK
     Route: 042
  5. TRIAMCINOLONE [Suspect]
     Active Substance: TRIAMCINOLONE
     Indication: PRODUCT USED FOR UNKNOWN INDICATION
     Dosage: 1 MILLILITER, 1 SINGLE, INJECTION, 40 MG/ML
     Route: 065
  6. AZATHIOPRINE. [Suspect]
     Active Substance: AZATHIOPRINE
     Indication: DERMATOMYOSITIS
     Dosage: UNK
     Route: 065

REACTIONS (5)
  - Uveitis [Recovering/Resolving]
  - Tractional retinal detachment [Recovering/Resolving]
  - Rhegmatogenous retinal detachment [Recovering/Resolving]
  - Eye infection toxoplasmal [Recovering/Resolving]
  - Blindness [Not Recovered/Not Resolved]
